FAERS Safety Report 16046652 (Version 1)
Quarter: 2019Q1

REPORT INFORMATION
  Report Type: Report from Study
  Country: US (occurrence: US)
  Receive Date: 20190307
  Receipt Date: 20190307
  Transmission Date: 20190418
  Serious: No
  Sender: FDA-Public Use
  Company Number: US-ROCHE-2277887

PATIENT
  Sex: Female
  Weight: 73.09 kg

DRUGS (1)
  1. OCREVUS [Suspect]
     Active Substance: OCRELIZUMAB
     Indication: RELAPSING MULTIPLE SCLEROSIS
     Dosage: ONGOING: YES?FOLLOWED BY 600 MG EVERY 6 MONTHS
     Route: 042

REACTIONS (1)
  - Sinusitis [Unknown]
